FAERS Safety Report 8440595-4 (Version None)
Quarter: 2012Q2

REPORT INFORMATION
  Report Type: 
  Country: None (occurrence: None)
  Receive Date: 20120323
  Receipt Date: 20110627
  Transmission Date: 20120825
  Serious: Yes (Hospitalization)
  Sender: FDA-Public Use
  Company Number: 163-21880-11063529

PATIENT
  Age: 82 Year
  Sex: Male
  Weight: 92.5338 kg

DRUGS (10)
  1. FLEXERIL [Concomitant]
  2. TOPROL-XL [Concomitant]
  3. DEXAMETHASONE [Concomitant]
  4. PROTONIX (UNKNOWN) [Concomitant]
  5. REVLIMID [Suspect]
     Indication: MULTIPLE MYELOMA
     Dosage: 2.5 MG, 5 MG EVERY OTHER DAY, PO
     Route: 048
     Dates: start: 20110412
  6. LEVOTHYROXIN (LEVOTHYROXINE SODIUM) (UNKNOWN) [Concomitant]
  7. LIPITOR [Concomitant]
  8. LISINOPRIL [Concomitant]
  9. SPIRIVA [Concomitant]
  10. CARAFATE [Concomitant]

REACTIONS (1)
  - OEDEMA PERIPHERAL [None]
